FAERS Safety Report 8595427-0 (Version None)
Quarter: 2012Q3

REPORT INFORMATION
  Report Type: 
  Country: None (occurrence: None)
  Receive Date: 20120815
  Receipt Date: 20120627
  Transmission Date: 20120928
  Serious: No
  Sender: FDA-Public Use
  Company Number: US-BRISTOL-MYERS SQUIBB COMPANY-16719122

PATIENT
  Age: 84 Year
  Sex: Male

DRUGS (8)
  1. DILTIAZEM HCL [Concomitant]
  2. LISINOPRIL [Concomitant]
  3. SIMVASTATIN [Concomitant]
  4. ASPIRIN [Concomitant]
  5. MULTI-VITAMINS [Concomitant]
  6. METOPROLOL TARTRATE [Concomitant]
  7. ONGLYZA [Suspect]
  8. DOXAZOSIN MESYLATE [Concomitant]

REACTIONS (2)
  - PRURITUS [None]
  - BURNING SENSATION [None]
